FAERS Safety Report 6771034-7 (Version None)
Quarter: 2010Q2

REPORT INFORMATION
  Report Type: 
  Country: None (occurrence: None)
  Receive Date: 20100616
  Receipt Date: 20100607
  Transmission Date: 20101027
  Serious: Yes (Other)
  Sender: FDA-Public Use
  Company Number: BE-TEVA-236990ISR

PATIENT
  Age: 74 Year
  Sex: Female

DRUGS (3)
  1. OXALIPLATIN [Suspect]
  2. FLUOROURACIL [Suspect]
  3. FOLINIC ACID [Concomitant]

REACTIONS (1)
  - ORGANISING PNEUMONIA [None]
